FAERS Safety Report 16160191 (Version 1)
Quarter: 2019Q2

REPORT INFORMATION
  Report Type: Spontaneous
  Country: GB (occurrence: GB)
  Receive Date: 20190404
  Receipt Date: 20190404
  Transmission Date: 20190711
  Serious: Yes (Other)
  Sender: FDA-Public Use
  Company Number: GB-ELI_LILLY_AND_COMPANY-GB201903014334

PATIENT

DRUGS (2)
  1. FLUOXETINE [Suspect]
     Active Substance: FLUOXETINE HYDROCHLORIDE
     Indication: DEPRESSION
     Dosage: UNK, UNKNOWN
     Route: 048
     Dates: start: 20190211
  2. FLUOXETINE [Suspect]
     Active Substance: FLUOXETINE HYDROCHLORIDE
     Dosage: 20MG/5ML, DAILY
     Route: 048
     Dates: start: 20190307, end: 20190316

REACTIONS (3)
  - Expired product administered [Unknown]
  - Product dispensing error [Unknown]
  - Depression [Recovered/Resolved]

NARRATIVE: CASE EVENT DATE: 201903
